FAERS Safety Report 5090139-2 (Version None)
Quarter: 2006Q3

REPORT INFORMATION
  Report Type: 
  Country: None (occurrence: None)
  Receive Date: 20060828
  Receipt Date: 20060803
  Transmission Date: 20061208
  Serious: Yes (Life-Threatening)
  Sender: FDA-Public Use
  Company Number: FR-ROCHE-458192

PATIENT
  Age: 53 Year
  Sex: Male

DRUGS (2)
  1. ROCEPHIN [Suspect]
     Indication: DRUG USE FOR UNKNOWN INDICATION
     Dosage: FORMULATION REPORTED AS INJECTABLE SOLUTION.
     Route: 042
     Dates: start: 20060716, end: 20060717
  2. GENTALLINE [Suspect]
     Indication: DRUG USE FOR UNKNOWN INDICATION
     Dosage: FORMULATION REPORTED AS INJECTABLE SOLUTION.
     Route: 042
     Dates: start: 20060716, end: 20060717

REACTIONS (4)
  - ASTHMA [None]
  - FACE OEDEMA [None]
  - HYPERSENSITIVITY [None]
  - URTICARIA [None]
